FAERS Safety Report 10223952 (Version 2)
Quarter: 2014Q2

REPORT INFORMATION
  Report Type: Spontaneous
  Country: BR (occurrence: BR)
  Receive Date: 20140609
  Receipt Date: 20140616
  Transmission Date: 20141212
  Serious: Yes (Hospitalization)
  Sender: FDA-Public Use
  Company Number: BR-ROCHE-1414297

PATIENT
  Age: 2 Year
  Sex: Male
  Weight: 12 kg

DRUGS (6)
  1. TAMIFLU [Suspect]
     Indication: INFLUENZA
     Dosage: MANUFACTURING DATE: NOV/2009, TAMIFLU 75 MG WAS DILUTED IN 5 ML OF WATER FOR INJECTION AND ADMINISTE
     Route: 042
     Dates: start: 201405
  2. TAMIFLU [Suspect]
     Route: 048
     Dates: start: 201405
  3. CEFTRIAXONE [Concomitant]
     Indication: PNEUMONIA
     Route: 065
  4. DIPYRONE [Concomitant]
     Indication: PYREXIA
  5. BEROTEC [Concomitant]
  6. ATROVENT [Concomitant]

REACTIONS (3)
  - Incorrect route of drug administration [Unknown]
  - Expired product administered [Unknown]
  - No adverse event [Unknown]
